FAERS Safety Report 21638244 (Version 2)
Quarter: 2022Q4

REPORT INFORMATION
  Report Type: Report from Study
  Country: US (occurrence: US)
  Receive Date: 20221124
  Receipt Date: 20221130
  Transmission Date: 20230113
  Serious: No
  Sender: FDA-Public Use
  Company Number: US-002147023-NVSC2022US263701

PATIENT
  Sex: Female

DRUGS (1)
  1. ENTRESTO [Suspect]
     Active Substance: SACUBITRIL\VALSARTAN
     Indication: Blood pressure measurement
     Dosage: 0.5 DOSAGE FORM, BID
     Route: 048
     Dates: start: 202103

REACTIONS (3)
  - Drug intolerance [Unknown]
  - Wrong technique in product usage process [Unknown]
  - Prescribed underdose [Unknown]
